FAERS Safety Report 8270593-5 (Version None)
Quarter: 2012Q2

REPORT INFORMATION
  Report Type: 
  Country: None (occurrence: None)
  Receive Date: 20120405
  Receipt Date: 20120327
  Transmission Date: 20120825
  Serious: Yes (Other)
  Sender: FDA-Public Use
  Company Number: AUR-APL-2012-01593

PATIENT
  Age: 33 Year
  Sex: Male

DRUGS (11)
  1. RIBAVIRIN [Suspect]
     Indication: HEPATITIS C
     Dosage: (1200 MG),ORAL
     Route: 048
     Dates: start: 20110516
  2. CLOZAPINE [Suspect]
     Indication: HEPATITIS C
     Dosage: 50 MG IN THE MORNING AND 300 MG IN THE NIGHT,ORAL
     Route: 048
     Dates: start: 20111025, end: 20120307
  3. CALCICHEW D3 (LEKOVIT CA) [Concomitant]
  4. MOVICOL (NULYTELY /01053601/) [Concomitant]
  5. RAMIPRIL [Suspect]
     Indication: HYPERTENSION
     Dosage: (2.5 MG,1 D),ORAL ; (5 MG,1 D),ORAL ; (10 MG,1 D),ORAL
     Route: 048
     Dates: start: 20120306, end: 20120309
  6. RAMIPRIL [Suspect]
     Indication: HYPERTENSION
     Dosage: (2.5 MG,1 D),ORAL ; (5 MG,1 D),ORAL ; (10 MG,1 D),ORAL
     Route: 048
     Dates: start: 20110822
  7. RAMIPRIL [Suspect]
     Indication: HYPERTENSION
     Dosage: (2.5 MG,1 D),ORAL ; (5 MG,1 D),ORAL ; (10 MG,1 D),ORAL
     Route: 048
     Dates: start: 20120302
  8. PEGINTERFERON ALFA-2A [Concomitant]
  9. VENLAFAXINE [Concomitant]
  10. BECLOMETHASONE DIPROPIONATE [Concomitant]
  11. OMEPRAZOLE [Concomitant]

REACTIONS (6)
  - CONSTIPATION [None]
  - DYSPEPSIA [None]
  - NEUTROPENIA [None]
  - HIV TEST POSITIVE [None]
  - DEPRESSION [None]
  - HYPERTENSION [None]
